FAERS Safety Report 8772126 (Version 4)
Quarter: 2014Q2

REPORT INFORMATION
  Report Type: Report from Study
  Country: MX (occurrence: MX)
  Receive Date: 20120906
  Receipt Date: 20140403
  Transmission Date: 20141212
  Serious: Yes (Life-Threatening, Hospitalization)
  Sender: FDA-Public Use
  Company Number: MX-JNJFOC-20120813121

PATIENT
  Age: 44 Year
  Sex: Male
  Weight: 68 kg

DRUGS (18)
  1. INTELENCE [Suspect]
     Indication: PATHOGEN RESISTANCE
     Dosage: 12 HOUR
     Route: 048
     Dates: start: 20090806
  2. PREZISTA [Suspect]
     Indication: PATHOGEN RESISTANCE
     Dosage: 12 HOUR
     Route: 048
     Dates: start: 20090806
  3. TOPAMAX [Suspect]
     Indication: MIGRAINE
     Route: 048
     Dates: start: 20120813, end: 20120822
  4. SIBELIUM [Concomitant]
     Indication: MIGRAINE
     Route: 048
     Dates: start: 20120813, end: 20120822
  5. CEFTRIAXONE [Concomitant]
     Route: 042
     Dates: start: 20120822
  6. VONTROL [Concomitant]
     Route: 048
     Dates: start: 20120813
  7. TEMPRA [Concomitant]
     Indication: PAIN
     Route: 048
     Dates: start: 20120813, end: 20120822
  8. PHENYTOIN [Concomitant]
     Route: 048
     Dates: start: 20120813
  9. PROFENID [Concomitant]
     Indication: PAIN
     Route: 048
     Dates: start: 20120813, end: 20120822
  10. SUPRADOL [Concomitant]
     Indication: PAIN
     Route: 065
     Dates: start: 20120813, end: 20120823
  11. PANTOPRAZOLE [Concomitant]
     Route: 042
     Dates: start: 20120822
  12. SERC [Concomitant]
     Route: 048
     Dates: start: 20120822
  13. CITICOLINE [Concomitant]
     Route: 042
     Dates: start: 20120823
  14. TRENTAL [Concomitant]
     Route: 065
     Dates: start: 20120823
  15. ERGOTAMINE [Concomitant]
     Indication: MIGRAINE
     Dosage: 1 / 50 / 400 MG
     Route: 048
     Dates: start: 20120813, end: 20120822
  16. RITONAVIR [Concomitant]
     Indication: HIV INFECTION
     Route: 048
     Dates: start: 20090806, end: 20120822
  17. TRUVADA [Concomitant]
     Route: 065
     Dates: start: 20090806, end: 20120822
  18. RINELON [Concomitant]

REACTIONS (5)
  - Head injury [Recovered/Resolved]
  - Cerebral haemorrhage [Recovered/Resolved]
  - Ear haemorrhage [Recovered/Resolved]
  - Ischaemia [Recovered/Resolved]
  - Migraine [Unknown]
